FAERS Safety Report 10707934 (Version 2)
Quarter: 2015Q1

REPORT INFORMATION
  Report Type: Spontaneous
  Country: US (occurrence: US)
  Receive Date: 20150113
  Receipt Date: 20150316
  Transmission Date: 20150721
  Serious: Yes (Hospitalization, Other)
  Sender: FDA-Public Use
  Company Number: US-ELI_LILLY_AND_COMPANY-US201501001220

PATIENT
  Sex: Male
  Weight: 82.18 kg

DRUGS (9)
  1. HUMALOG [Suspect]
     Active Substance: INSULIN LISPRO
     Indication: DIABETES MELLITUS INADEQUATE CONTROL
     Dosage: UNK
     Route: 058
     Dates: start: 1997
  2. LISINOPRIL. [Concomitant]
     Active Substance: LISINOPRIL
     Indication: DIABETES MELLITUS INADEQUATE CONTROL
     Dosage: 2.5 MG, QD
     Route: 048
  3. PANTOPRAZOLE SODIUM [Concomitant]
     Active Substance: PANTOPRAZOLE SODIUM
     Dosage: 40 MG, BID
     Route: 048
  4. PROMETHAZINE HCL [Concomitant]
     Active Substance: PROMETHAZINE HYDROCHLORIDE
     Dosage: 12.5 MG, PRN
     Route: 048
  5. ASPIRIN                            /00002701/ [Concomitant]
     Active Substance: ASPIRIN
     Dosage: UNK, QD
     Route: 048
  6. RISPERIDONE. [Concomitant]
     Active Substance: RISPERIDONE
     Dosage: 1 MG, BID
     Route: 048
  7. 25-HYDROXYVITAMIN D3 [Concomitant]
  8. EXELON [Concomitant]
     Active Substance: RIVASTIGMINE TARTRATE
     Dosage: 4.6 MG, QD
     Route: 062
  9. GLUCAGON EMERGENCY KIT [Concomitant]
     Dosage: UNK, OTHER

REACTIONS (10)
  - Neuropathy peripheral [Unknown]
  - Diabetic ketoacidosis [Recovering/Resolving]
  - Hyperlipidaemia [Unknown]
  - Myocardial infarction [Unknown]
  - Vascular dementia [Unknown]
  - Glycosylated haemoglobin increased [Unknown]
  - Cataract [Unknown]
  - Diabetic ketoacidosis [Unknown]
  - Lenticular opacities [Unknown]
  - Renal impairment [Unknown]

NARRATIVE: CASE EVENT DATE: 2012
